FAERS Safety Report 20062771 (Version 1)
Quarter: 2021Q4

REPORT INFORMATION
  Report Type: Spontaneous
  Country: FR (occurrence: FR)
  Receive Date: 20211112
  Receipt Date: 20211112
  Transmission Date: 20220303
  Serious: Yes (Hospitalization)
  Sender: FDA-Public Use
  Company Number: FR-ABBVIE-21K-056-4157601-00

PATIENT
  Age: 5 Year
  Sex: Female
  Weight: 22 kg

DRUGS (2)
  1. VALPROATE SODIUM [Suspect]
     Active Substance: VALPROATE SODIUM
     Indication: Epilepsy
     Route: 048
     Dates: start: 20191202, end: 20191203
  2. CLOBAZAM [Suspect]
     Active Substance: CLOBAZAM
     Indication: Epilepsy
     Route: 048
     Dates: start: 20191202, end: 20191202

REACTIONS (4)
  - Rash papular [Recovered/Resolved]
  - Erythema [Recovered/Resolved]
  - Pruritus [Recovered/Resolved]
  - Diarrhoea [Recovered/Resolved]

NARRATIVE: CASE EVENT DATE: 20191203
